FAERS Safety Report 18556856 (Version 1)
Quarter: 2020Q4

REPORT INFORMATION
  Report Type: Report from Study
  Country: US (occurrence: US)
  Receive Date: 20201128
  Receipt Date: 20201128
  Transmission Date: 20210114
  Serious: Yes (Other)
  Sender: FDA-Public Use
  Company Number: NVSC2020US315688

PATIENT
  Sex: Male

DRUGS (1)
  1. ENTRESTO [Suspect]
     Active Substance: SACUBITRIL\VALSARTAN
     Indication: PRODUCT USED FOR UNKNOWN INDICATION
     Dosage: 50 MG (24/26 MG), BID (STARTED APPROXIMATELY 4 DAYS AGO)
     Route: 048

REACTIONS (4)
  - Dyspnoea [Unknown]
  - Dizziness [Unknown]
  - Loss of consciousness [Unknown]
  - Nausea [Unknown]
